FAERS Safety Report 7245513-2 (Version None)
Quarter: 2011Q1

REPORT INFORMATION
  Report Type: 
  Country: None (occurrence: None)
  Receive Date: 20110126
  Receipt Date: 20110117
  Transmission Date: 20110831
  Serious: Yes (Hospitalization)
  Sender: FDA-Public Use
  Company Number: BR-ASTRAZENECA-2011SE02909

PATIENT
  Age: 69 Year
  Sex: Female
  Weight: 85 kg

DRUGS (6)
  1. UNKNOWN [Concomitant]
     Indication: HYPERCHOLESTEROLAEMIA
     Route: 048
     Dates: end: 20090101
  2. SIMVASTATIN [Concomitant]
     Indication: HYPERCHOLESTEROLAEMIA
     Dosage: DAILY
     Route: 048
     Dates: start: 20090101
  3. ATACAND HCT [Suspect]
     Indication: HYPERTENSION
     Dosage: 8/12.5 MG DAILY
     Route: 048
     Dates: start: 20050101
  4. SELOPRESS ZOK [Suspect]
     Indication: HYPERTENSION
     Route: 048
     Dates: end: 20050101
  5. FRONTAL [Concomitant]
     Indication: INSOMNIA
     Route: 048
     Dates: start: 20000101, end: 20050101
  6. OMEPRAZOLE [Suspect]
     Indication: GASTRITIS
     Route: 048
     Dates: start: 20070101

REACTIONS (11)
  - FATIGUE [None]
  - GASTRITIS [None]
  - UMBILICAL HERNIA [None]
  - SOMNOLENCE [None]
  - ROAD TRAFFIC ACCIDENT [None]
  - MUCOSAL DRYNESS [None]
  - WRONG TECHNIQUE IN DRUG USAGE PROCESS [None]
  - DRUG DOSE OMISSION [None]
  - DYSPNOEA [None]
  - FEMUR FRACTURE [None]
  - NECK PAIN [None]
